FAERS Safety Report 7410094-7 (Version None)
Quarter: 2011Q2

REPORT INFORMATION
  Report Type: 
  Country: None (occurrence: None)
  Receive Date: 20110412
  Receipt Date: 20110331
  Transmission Date: 20111010
  Serious: Yes (Life-Threatening, Other)
  Sender: FDA-Public Use
  Company Number: JP-ROCHE-732742

PATIENT
  Sex: Male
  Weight: 57 kg

DRUGS (12)
  1. FERROUS CITRATE [Concomitant]
     Route: 048
     Dates: start: 20101001
  2. ELPLAT [Suspect]
     Indication: LARGE INTESTINE CARCINOMA
     Route: 041
     Dates: start: 20101004, end: 20101004
  3. LEVOFOLINATE [Suspect]
     Indication: LARGE INTESTINE CARCINOMA
     Route: 041
     Dates: start: 20101004, end: 20101004
  4. DECADRON [Concomitant]
     Route: 041
     Dates: start: 20101004, end: 20101004
  5. EMEND [Concomitant]
     Route: 048
     Dates: start: 20101005
  6. TALION [Concomitant]
     Route: 048
     Dates: start: 20101001
  7. PROTECADIN [Concomitant]
     Route: 048
     Dates: start: 20101001
  8. FLUOROURACIL [Suspect]
     Indication: LARGE INTESTINE CARCINOMA
     Route: 040
     Dates: start: 20101004, end: 20101004
  9. FLUOROURACIL [Suspect]
     Dosage: DOSAGE IS UNCERTAIN. FORM : INTRAVENOUS DRIP.
     Route: 040
     Dates: start: 20101004, end: 20101001
  10. EMEND [Concomitant]
     Route: 048
     Dates: start: 20101004, end: 20101004
  11. RAMOSETRON HYDROCHLORIDE [Concomitant]
     Route: 048
     Dates: start: 20101006
  12. AVASTIN [Suspect]
     Indication: LARGE INTESTINE CARCINOMA
     Route: 041
     Dates: start: 20101004, end: 20101004

REACTIONS (13)
  - HYPOXIC-ISCHAEMIC ENCEPHALOPATHY [None]
  - SEPSIS [None]
  - WHITE BLOOD CELL COUNT DECREASED [None]
  - PSEUDOMONAS TEST POSITIVE [None]
  - CARDIO-RESPIRATORY ARREST [None]
  - ATRIAL FIBRILLATION [None]
  - HAEMOGLOBIN DECREASED [None]
  - ALTERED STATE OF CONSCIOUSNESS [None]
  - ANTIBIOTIC RESISTANT STAPHYLOCOCCUS TEST POSITIVE [None]
  - FALL [None]
  - PNEUMONIA [None]
  - SUPRAVENTRICULAR TACHYCARDIA [None]
  - VENTRICULAR FIBRILLATION [None]
